FAERS Safety Report 25195437 (Version 2)
Quarter: 2025Q2

REPORT INFORMATION
  Report Type: Spontaneous
  Country: US (occurrence: US)
  Receive Date: 20250415
  Receipt Date: 20250415
  Transmission Date: 20250717
  Serious: No
  Sender: SANOFI AVENTIS
  Company Number: US-SA-2025SA103919

PATIENT
  Sex: Male
  Weight: 113.64 kg

DRUGS (19)
  1. DUPIXENT [Suspect]
     Active Substance: DUPILUMAB
     Indication: Neurodermatitis
     Dosage: 300 MG, QOW
     Route: 058
  2. DERMELEVE [Concomitant]
     Active Substance: ALUMINUM ACETATE
  3. NAC [Concomitant]
  4. CEPHALEXIN [Concomitant]
     Active Substance: CEPHALEXIN
  5. ATORVASTATIN CALCIUM [Concomitant]
     Active Substance: ATORVASTATIN CALCIUM
  6. Mitchga [Concomitant]
  7. DOXYCYCLINE HYCLATE [Concomitant]
     Active Substance: DOXYCYCLINE HYCLATE
  8. CLOPIDOGREL [Concomitant]
     Active Substance: CLOPIDOGREL BISULFATE
  9. POTASSIUM CHLORIDE [Concomitant]
     Active Substance: POTASSIUM CHLORIDE
  10. SERTRALINE HYDROCHLORIDE [Concomitant]
     Active Substance: SERTRALINE HYDROCHLORIDE
  11. MYRBETRIQ [Concomitant]
     Active Substance: MIRABEGRON
  12. MIRABEGRON [Concomitant]
     Active Substance: MIRABEGRON
  13. Trivalent influenza vaccine [Concomitant]
  14. VALSARTAN [Concomitant]
     Active Substance: VALSARTAN
  15. OXYCONTIN [Concomitant]
     Active Substance: OXYCODONE HYDROCHLORIDE
  16. JARDIANCE [Concomitant]
     Active Substance: EMPAGLIFLOZIN
  17. PROPRANOLOL HYDROCHLORIDE [Concomitant]
     Active Substance: PROPRANOLOL HYDROCHLORIDE
  18. LASIX [Concomitant]
     Active Substance: FUROSEMIDE
  19. VITAMIN B12 [Concomitant]
     Active Substance: CYANOCOBALAMIN

REACTIONS (1)
  - Drug ineffective [Unknown]
